FAERS Safety Report 6113126-1 (Version None)
Quarter: 2009Q1

REPORT INFORMATION
  Report Type: 
  Country: None (occurrence: None)
  Receive Date: 20090312
  Receipt Date: 20090302
  Transmission Date: 20090719
  Serious: Yes (Death, Hospitalization, Other)
  Sender: FDA-Public Use
  Company Number: US-MERCK-0810USA00408

PATIENT
  Age: 57 Year
  Sex: Female

DRUGS (1)
  1. FOSAMAX [Suspect]
     Indication: OSTEOPOROSIS PROPHYLAXIS
     Route: 048
     Dates: start: 19990901, end: 20050101

REACTIONS (9)
  - ADVERSE EVENT [None]
  - BLOOD CHOLESTEROL INCREASED [None]
  - BREAST CANCER [None]
  - DEATH [None]
  - DENTAL CARIES [None]
  - HORMONE LEVEL ABNORMAL [None]
  - ORAL INFECTION [None]
  - OSTEONECROSIS [None]
  - PERIODONTAL DISEASE [None]
